FAERS Safety Report 20350354 (Version 1)
Quarter: 2022Q1

REPORT INFORMATION
  Report Type: Spontaneous
  Country: US (occurrence: None)
  Receive Date: 20220117
  Receipt Date: 20220117
  Transmission Date: 20220424
  Serious: Yes (Other)
  Sender: FDA-Public Use
  Company Number: None

PATIENT
  Age: 30 Year
  Sex: Female
  Weight: 76.5 kg

DRUGS (3)
  1. AMOXICILLIN [Suspect]
     Active Substance: AMOXICILLIN
     Indication: Product dispensing error
     Dosage: OTHER QUANTITY : 2 TABLET(S);?
     Dates: start: 20220112, end: 20220112
  2. CLONAZEPAM [Suspect]
     Active Substance: CLONAZEPAM
  3. VITAMINS [Concomitant]
     Active Substance: VITAMINS

REACTIONS (8)
  - Product dispensing error [None]
  - Dizziness [None]
  - Dizziness [None]
  - Somnolence [None]
  - Pallor [None]
  - Slow speech [None]
  - Drug screen positive [None]
  - Emotional disorder [None]

NARRATIVE: CASE EVENT DATE: 20220112
